FAERS Safety Report 5379124-0 (Version None)
Quarter: 2007Q3

REPORT INFORMATION
  Report Type: 
  Country: None (occurrence: None)
  Receive Date: 20070705
  Receipt Date: 20070622
  Transmission Date: 20080115
  Serious: Yes (Hospitalization)
  Sender: FDA-Public Use
  Company Number: DE-ELI_LILLY_AND_COMPANY-DE200706005976

PATIENT
  Age: 41 Year
  Sex: Male

DRUGS (7)
  1. CYMBALTA [Suspect]
     Indication: SOMATOFORM DISORDER
     Dosage: 30 MG, DAILY (1/D)
     Route: 048
     Dates: start: 20070111
  2. MORFINE [Concomitant]
     Dosage: 360 MG, DAILY (1/D)
     Route: 048
     Dates: start: 20070103, end: 20070111
  3. NEUROCIL [Concomitant]
     Dosage: 500 MG, DAILY (1/D)
     Route: 048
     Dates: start: 20070103
  4. DIMENHYDRINATE [Concomitant]
     Dosage: 100 MG, DAILY (1/D)
     Route: 048
     Dates: start: 20070103
  5. PANTOZOL [Concomitant]
     Dosage: 40 MG, DAILY (1/D)
     Route: 048
     Dates: start: 20070103
  6. NEURONTIN [Concomitant]
  7. NEURONTIN [Concomitant]
     Dosage: 3600 MG, UNK
     Route: 048
     Dates: start: 20070106

REACTIONS (2)
  - DRUG INTERACTION [None]
  - URINARY RETENTION [None]
